FAERS Safety Report 6555784-3 (Version None)
Quarter: 2010Q1

REPORT INFORMATION
  Report Type: 
  Country: None (occurrence: None)
  Receive Date: 20100128
  Receipt Date: 20100122
  Transmission Date: 20100710
  Serious: Yes (Hospitalization, Other)
  Sender: FDA-Public Use
  Company Number: OM-ROXANE LABORATORIES, INC.-2010-RO-00090RO

PATIENT
  Age: 15 Year
  Sex: Female

DRUGS (8)
  1. METHOTREXATE [Suspect]
     Indication: ARTHRITIS
  2. METHOTREXATE [Suspect]
  3. METHOTREXATE [Suspect]
  4. NAPROXEN [Suspect]
     Indication: ARTHRITIS
  5. PREDNISONE TAB [Suspect]
     Indication: THERAPEUTIC RESPONSE DECREASED
  6. PREDNISONE TAB [Suspect]
     Dosage: 40 MG
  7. INDOMETHACIN [Suspect]
     Indication: JUVENILE ARTHRITIS
  8. INDOMETHACIN [Suspect]
     Dosage: 75 MG

REACTIONS (4)
  - ARTHRITIS [None]
  - JUVENILE ARTHRITIS [None]
  - RHEUMATOID NODULE [None]
  - THERAPEUTIC RESPONSE DECREASED [None]
